FAERS Safety Report 23014262 (Version 1)
Quarter: 2023Q4

REPORT INFORMATION
  Report Type: Spontaneous
  Country: US (occurrence: US)
  Receive Date: 20231002
  Receipt Date: 20231002
  Transmission Date: 20240110
  Serious: No
  Sender: FDA-Public Use
  Company Number: US-BIOGEN-2023BI01228581

PATIENT
  Age: 12 Year
  Sex: Female

DRUGS (1)
  1. SPINRAZA [Suspect]
     Active Substance: NUSINERSEN
     Indication: Product used for unknown indication
     Route: 050
     Dates: end: 20230920

REACTIONS (1)
  - Post lumbar puncture syndrome [Not Recovered/Not Resolved]

NARRATIVE: CASE EVENT DATE: 20230920
